FAERS Safety Report 16208523 (Version 8)
Quarter: 2020Q2

REPORT INFORMATION
  Report Type: Spontaneous
  Country: US (occurrence: US)
  Receive Date: 20190417
  Receipt Date: 20200429
  Transmission Date: 20200713
  Serious: Yes (Other)
  Sender: FDA-Public Use
  Company Number: US-PFIZER INC-2019156642

PATIENT
  Age: 74 Year
  Sex: Female
  Weight: 62.6 kg

DRUGS (3)
  1. XALATAN [Suspect]
     Active Substance: LATANOPROST
     Indication: INTRAOCULAR PRESSURE INCREASED
     Dosage: UNK
     Route: 047
     Dates: start: 2004
  2. XALATAN [Suspect]
     Active Substance: LATANOPROST
     Dosage: 2 GTT, 2X/DAY (LEFT SIDE ONE DROP TWICE A DAY)
     Route: 047
  3. XALATAN [Suspect]
     Active Substance: LATANOPROST
     Dosage: 1 GTT, 1X/DAY (RIGHT EYE ONE DROPP ONCE A DAY)
     Route: 047

REACTIONS (14)
  - Loss of personal independence in daily activities [Unknown]
  - Blindness [Unknown]
  - Prescribed overdose [Unknown]
  - Gait inability [Unknown]
  - Hypoacusis [Unknown]
  - Cerebrovascular accident [Unknown]
  - Retinal disorder [Unknown]
  - Speech disorder [Unknown]
  - Colour blindness [Unknown]
  - Memory impairment [Unknown]
  - Disturbance in attention [Unknown]
  - Tinnitus [Unknown]
  - Body height decreased [Unknown]
  - Limb injury [Unknown]

NARRATIVE: CASE EVENT DATE: 2015
